FAERS Safety Report 8365617-0 (Version None)
Quarter: 2012Q2

REPORT INFORMATION
  Report Type: 
  Country: None (occurrence: None)
  Receive Date: 20120516
  Receipt Date: 20120510
  Transmission Date: 20120825
  Serious: Yes (Other)
  Sender: FDA-Public Use
  Company Number: TH-MERCK-1205USA02023

PATIENT
  Age: 68 Year
  Sex: Female

DRUGS (1)
  1. INVANZ [Suspect]
     Indication: CYSTITIS
     Route: 051
     Dates: start: 20120501

REACTIONS (1)
  - DEMENTIA [None]
